FAERS Safety Report 9136157 (Version 1)
Quarter: 2013Q1

REPORT INFORMATION
  Report Type: Spontaneous
  Country: US (occurrence: US)
  Receive Date: 20130304
  Receipt Date: 20130304
  Transmission Date: 20140127
  Serious: Yes (Death, Hospitalization)
  Sender: FDA-Public Use
  Company Number: US-GLAXOSMITHKLINE-A1000193A

PATIENT
  Age: 43 Year
  Sex: Female

DRUGS (4)
  1. FLOLAN [Suspect]
     Indication: COR PULMONALE CHRONIC
     Dosage: 16.9NGKM CONTINUOUS
     Route: 042
     Dates: start: 20000516
  2. TRACLEER [Concomitant]
  3. COUMADIN [Concomitant]
  4. REVATIO [Concomitant]

REACTIONS (5)
  - Death [Fatal]
  - Tunnel vision [Unknown]
  - Dizziness [Unknown]
  - Ill-defined disorder [Unknown]
  - Pyrexia [Unknown]
